FAERS Safety Report 7599181-0 (Version None)
Quarter: 2011Q3

REPORT INFORMATION
  Report Type: 
  Country: None (occurrence: None)
  Receive Date: 20110711
  Receipt Date: 20101214
  Transmission Date: 20111222
  Serious: Yes (Other)
  Sender: FDA-Public Use
  Company Number: US-BAYER-201023203NA

PATIENT
  Age: 79 Year
  Sex: Male
  Weight: 77 kg

DRUGS (20)
  1. PLATELETS [Concomitant]
     Dosage: 1 PACK / 1 UNIT PLATELET PHERESIS
     Dates: start: 20040621
  2. RED BLOOD CELLS [Concomitant]
     Dosage: 4 UNITS PACKED CELLS
     Dates: start: 20040621
  3. VERSED [Concomitant]
     Dosage: UNK
     Route: 042
     Dates: start: 20040621, end: 20040621
  4. NITROGLYCERIN [Concomitant]
     Dosage: UNK
     Route: 042
     Dates: start: 20040621, end: 20040621
  5. METOPROLOL TARTRATE [Concomitant]
  6. LISINOPRIL [Concomitant]
  7. FRESH FROZEN PLASMA [Concomitant]
     Dosage: 2 U, UNK
     Dates: start: 20040621
  8. LOVASTATIN [Concomitant]
     Dosage: 40 MG, UNK
     Route: 048
  9. EPINEPHRINE [Concomitant]
     Dosage: UNK
     Route: 042
     Dates: start: 20040621, end: 20040621
  10. DOPAMINE HCL [Concomitant]
     Dosage: UNK
     Route: 042
     Dates: start: 20040621, end: 20040621
  11. TRASYLOL [Suspect]
     Indication: INTRA-AORTIC BALLOON PLACEMENT
  12. AMIODARONE HCL [Concomitant]
  13. TRASYLOL [Suspect]
     Indication: MITRAL VALVE REPAIR
  14. ACETYLSALICYLIC ACID SRT [Concomitant]
     Dosage: 81 MG, UNK
     Route: 048
  15. TRASYLOL [Suspect]
     Indication: CORONARY ARTERY BYPASS
     Dosage: UNK
     Route: 042
     Dates: start: 20040621, end: 20040621
  16. HEPARIN [Concomitant]
     Dosage: 80 MG, UNK
     Dates: start: 20010621, end: 20010621
  17. TOPROL-XL [Concomitant]
     Dosage: 25 MG, UNK
     Route: 048
  18. AMBIEN [Concomitant]
     Dosage: 10 MG, QD
     Route: 048
  19. ACETYLSALICYLIC ACID SRT [Concomitant]
     Dosage: 325 MG, QD
     Route: 048
  20. LEVOPHED [Concomitant]
     Dosage: UNK
     Route: 042
     Dates: start: 20040621, end: 20040621

REACTIONS (7)
  - INJURY [None]
  - STRESS [None]
  - CEREBROVASCULAR ACCIDENT [None]
  - ANXIETY [None]
  - FEAR [None]
  - PAIN [None]
  - ANHEDONIA [None]
